FAERS Safety Report 19642278 (Version 1)
Quarter: 2021Q3

REPORT INFORMATION
  Report Type: Spontaneous
  Country: US (occurrence: US)
  Receive Date: 20210730
  Receipt Date: 20210730
  Transmission Date: 20211014
  Serious: No
  Sender: FDA-Public Use
  Company Number: US-SA-2021SA248579

PATIENT
  Age: 48 Year
  Sex: Female

DRUGS (1)
  1. DUPIXENT [Suspect]
     Active Substance: DUPILUMAB
     Dosage: 300 MG, QOW
     Route: 058
     Dates: start: 202106

REACTIONS (5)
  - Pain of skin [Unknown]
  - Rash [Unknown]
  - Erythema [Unknown]
  - Hypersensitivity [Unknown]
  - Dermatitis [Unknown]

NARRATIVE: CASE EVENT DATE: 2021
